FAERS Safety Report 18361040 (Version 8)
Quarter: 2021Q1

REPORT INFORMATION
  Report Type: Report from Study
  Country: US (occurrence: US)
  Receive Date: 20201008
  Receipt Date: 20210215
  Transmission Date: 20210419
  Serious: Yes (Other)
  Sender: FDA-Public Use
  Company Number: NVSC2020US272127

PATIENT
  Age: 62 Year
  Sex: Female

DRUGS (1)
  1. ENTRESTO [Suspect]
     Active Substance: SACUBITRIL\VALSARTAN
     Indication: CARDIAC FAILURE
     Dosage: 49.51 MG (24/26 MG), BID
     Route: 048
     Dates: start: 20200817

REACTIONS (9)
  - Insomnia [Unknown]
  - Feeling cold [Unknown]
  - Hypotension [Unknown]
  - Dizziness [Unknown]
  - Swelling [Unknown]
  - Product dose omission issue [Unknown]
  - Fatigue [Unknown]
  - Ejection fraction decreased [Unknown]
  - Rhinorrhoea [Unknown]

NARRATIVE: CASE EVENT DATE: 20200912
